FAERS Safety Report 22026921 (Version 2)
Quarter: 2024Q4

REPORT INFORMATION
  Report Type: Spontaneous
  Country: US (occurrence: US)
  Receive Date: 20230223
  Receipt Date: 20241018
  Transmission Date: 20250115
  Serious: No
  Sender: ROCHE
  Company Number: US-ROCHE-3206603

PATIENT
  Sex: Female

DRUGS (3)
  1. XOLAIR [Suspect]
     Active Substance: OMALIZUMAB
     Indication: Type 2 diabetes mellitus
     Dosage: EVERY 2 WEEKS, STRENGTH: 150 MG AND 75 MG
     Route: 058
     Dates: start: 20161018
  2. XOLAIR [Suspect]
     Active Substance: OMALIZUMAB
     Indication: Hyperglycaemia
     Route: 058
  3. TRULICITY [Concomitant]
     Active Substance: DULAGLUTIDE

REACTIONS (2)
  - Illness [Unknown]
  - Off label use [Unknown]
